FAERS Safety Report 7031013-1 (Version None)
Quarter: 2010Q4

REPORT INFORMATION
  Report Type: 
  Country: None (occurrence: None)
  Receive Date: 20101006
  Receipt Date: 20100929
  Transmission Date: 20110411
  Serious: Yes (Hospitalization)
  Sender: FDA-Public Use
  Company Number: US-CUBIST-2010S1001418

PATIENT
  Age: 40 Year
  Sex: Male

DRUGS (4)
  1. CUBICIN [Suspect]
     Indication: STAPHYLOCOCCAL BACTERAEMIA
  2. RIFAMPIN [Concomitant]
     Indication: STAPHYLOCOCCAL BACTERAEMIA
  3. GENTAMICIN [Concomitant]
     Indication: STAPHYLOCOCCAL BACTERAEMIA
  4. LINEZOLID [Concomitant]
     Indication: STAPHYLOCOCCAL INFECTION

REACTIONS (3)
  - ANTIMICROBIAL SUSCEPTIBILITY TEST RESISTANT [None]
  - CARDIAC DISORDER [None]
  - PYREXIA [None]
